FAERS Safety Report 10651859 (Version 1)
Quarter: 2014Q4

REPORT INFORMATION
  Report Type: Spontaneous
  Country: US (occurrence: US)
  Receive Date: 20141215
  Receipt Date: 20141215
  Transmission Date: 20150529
  Serious: No
  Sender: FDA-Public Use
  Company Number: US-TEVA-525208USA

PATIENT

DRUGS (1)
  1. COPAXONE [Suspect]
     Active Substance: GLATIRAMER ACETATE

REACTIONS (5)
  - Cold sweat [Unknown]
  - Burning sensation [Unknown]
  - Hypersensitivity [Unknown]
  - Urticaria [Unknown]
  - Heart rate increased [Unknown]
